FAERS Safety Report 6406134-4 (Version None)
Quarter: 2009Q4

REPORT INFORMATION
  Report Type: 
  Country: None (occurrence: None)
  Receive Date: 20091019
  Receipt Date: 20091013
  Transmission Date: 20100525
  Serious: Yes (Hospitalization)
  Sender: FDA-Public Use
  Company Number: CA-ALLERGAN-0906342US

PATIENT
  Age: 31 Year
  Sex: Male

DRUGS (2)
  1. BOTOX [Suspect]
     Indication: HYPERHIDROSIS
     Dosage: 200 UNITS, SINGLE
     Route: 023
     Dates: start: 20090422, end: 20090422
  2. BOTOX [Suspect]
     Dosage: 200 UNITS, SINGLE
     Route: 023
     Dates: start: 20080601, end: 20080601

REACTIONS (1)
  - EYELID PTOSIS [None]
